FAERS Safety Report 23633893 (Version 1)
Quarter: 2024Q1

REPORT INFORMATION
  Report Type: Spontaneous
  Country: IT (occurrence: IT)
  Receive Date: 20240314
  Receipt Date: 20240314
  Transmission Date: 20240409
  Serious: Yes (Other)
  Sender: FDA-Public Use
  Company Number: None

PATIENT
  Age: 79 Year
  Sex: Female

DRUGS (11)
  1. SYNJARDY [Suspect]
     Active Substance: EMPAGLIFLOZIN\METFORMIN HYDROCHLORIDE
     Indication: Diabetes mellitus
     Dosage: SYNJARDY*56CPR RIV (AS REPORTED) 12,5+1000MG - DOSING SCHEME: 2 CPR (AS REPORTED) PER DAY
     Route: 048
     Dates: start: 20210120, end: 202309
  2. ASPIRIN [Concomitant]
     Active Substance: ASPIRIN
     Indication: Hypertensive heart disease
     Dosage: CARDIOASPIRIN*30CPR GAST (AS REPORTED) 100MG ? 1 CP (AS REPORTED) PER DAY
     Route: 048
     Dates: start: 2023
  3. FOLINA [Concomitant]
     Indication: Anaemia
     Dosage: FOLINA*28CPS (AS REPORTED) 5MG ? 1 CP (AS REPORTED) PER DAY
     Route: 048
     Dates: start: 2023
  4. OLMESARTAN MEDOXOMIL [Concomitant]
     Active Substance: OLMESARTAN MEDOXOMIL
     Indication: Hypertensive heart disease
     Dosage: OLMESARTAN DOC*28CPR RIV (AS REPORTED) 20MG ? 1 CP (AS REPORTED) PER DAY
     Route: 048
     Dates: start: 2023
  5. FERROUS SULFATE [Concomitant]
     Active Substance: FERROUS SULFATE
     Indication: Anaemia
     Dosage: TARDYFER*30CPR (AS REPORTED) 80MG RP ? 1 CP (AS REPORTED) PER DAY
     Route: 048
     Dates: start: 2023
  6. PREGABALIN [Concomitant]
     Active Substance: PREGABALIN
     Indication: Generalised anxiety disorder
     Dosage: PREGABALIN SDZ* 75MG 56CPS ? 1 CP (AS REPORTED) PER DAY
     Route: 048
     Dates: start: 2023
  7. INSULIN GLARGINE [Concomitant]
     Active Substance: INSULIN GLARGINE
     Indication: Diabetes mellitus
     Dosage: ABASAGLAR*SC 5 KWIKPEN 100U/ML? 20 IU IN THE MORNING
     Route: 058
     Dates: start: 2021
  8. METFORMIN HYDROCHLORIDE [Concomitant]
     Active Substance: METFORMIN HYDROCHLORIDE
     Indication: Diabetes mellitus
     Dosage: ZUGLIMET*60CPR RIV 1000MG ? 2 CP (AS REPORTED) PER DAY
     Route: 048
     Dates: start: 2023
  9. NEBIVOLOLO SANDOZ [Concomitant]
     Indication: Hypertensive heart disease
     Dosage: NEBIVOLOLO SDZ*28CPR 5MG ? 1 CP (AS REPORTED) PER DAY
     Route: 048
     Dates: start: 2023
  10. SIMVASTATINA HEXAL [Concomitant]
     Indication: Dyslipidaemia
     Dosage: SIMVASTATINA HEZ*28CPR RIV (AS REPORTED) 20MG
     Route: 048
     Dates: start: 2023
  11. LANSOPRAZOLE [Concomitant]
     Active Substance: LANSOPRAZOLE
     Indication: Gastrooesophageal reflux disease
     Dosage: LANSOPRAZOLO TEV* 30MG28CPS ? 1 CP (AS REPORTED) PER DAY
     Route: 048
     Dates: start: 2023

REACTIONS (8)
  - Perineal abscess [Recovered/Resolved]
  - Pain [Recovered/Resolved]
  - Mucosal inflammation [Recovered/Resolved]
  - Cystitis [Recovered/Resolved]
  - Pyrexia [Recovered/Resolved]
  - Urinary tract infection [Recovered/Resolved]
  - Malaise [Recovered/Resolved]
  - Anorectal swelling [Recovered/Resolved]

NARRATIVE: CASE EVENT DATE: 20230801
